FAERS Safety Report 21257270 (Version 1)
Quarter: 2022Q3

REPORT INFORMATION
  Report Type: Spontaneous
  Country: GB (occurrence: GB)
  Receive Date: 20220826
  Receipt Date: 20220826
  Transmission Date: 20221027
  Serious: Yes (Other)
  Sender: FDA-Public Use
  Company Number: GB-SUN PHARMACEUTICAL INDUSTRIES LTD-2022RR-352169

PATIENT
  Age: 67 Year
  Sex: Female
  Weight: 86 kg

DRUGS (6)
  1. ATORVASTATIN [Suspect]
     Active Substance: ATORVASTATIN
     Indication: Ill-defined disorder
     Dosage: UNK
     Route: 065
     Dates: start: 20220810
  2. AMLODIPINE [Concomitant]
     Active Substance: AMLODIPINE BESYLATE
     Indication: Ill-defined disorder
     Dosage: 1 MANE
     Route: 065
     Dates: start: 20210906
  3. ATORVASTATIN [Concomitant]
     Active Substance: ATORVASTATIN
     Indication: Ill-defined disorder
     Dosage: TAKE ONE DAILY TO REDUCE CHOLESTEROL LEVELS
     Route: 065
     Dates: start: 20220714
  4. INDAPAMIDE [Concomitant]
     Active Substance: INDAPAMIDE
     Indication: Ill-defined disorder
     Dosage: TAKE ONE EACH MORNING TO CONTROL BLOOD PRESSURE
     Route: 065
     Dates: start: 20220714
  5. LANSOPRAZOLE [Concomitant]
     Active Substance: LANSOPRAZOLE
     Indication: Ill-defined disorder
     Dosage: ONE TO BE TAKEN EACH MORNING ON AN EMPTY STOMACH
     Route: 065
     Dates: start: 20210610
  6. MOVICOL [Concomitant]
     Active Substance: POLYETHYLENE GLYCOL 3350\POTASSIUM CHLORIDE\SODIUM BICARBONATE\SODIUM CHLORIDE
     Indication: Ill-defined disorder
     Dosage: TAKE ONE SACHET ONCE OR TWICE DAILY FOR CONSTIP...
     Route: 065
     Dates: start: 20210906

REACTIONS (1)
  - Tension headache [Recovering/Resolving]

NARRATIVE: CASE EVENT DATE: 20220810
